FAERS Safety Report 9711681 (Version 2)
Quarter: 2013Q4

REPORT INFORMATION
  Report Type: Spontaneous
  Country: US (occurrence: US)
  Receive Date: 20131126
  Receipt Date: 20131126
  Transmission Date: 20140711
  Serious: No
  Sender: FDA-Public Use
  Company Number: US-BRISTOL-MYERS SQUIBB COMPANY-19095207

PATIENT
  Age: 62 Year
  Sex: Female
  Weight: 108.84 kg

DRUGS (6)
  1. BYDUREON [Suspect]
     Indication: TYPE 2 DIABETES MELLITUS
     Route: 058
     Dates: start: 201302
  2. BYSTOLIC [Concomitant]
  3. PRAVADUAL [Concomitant]
     Dosage: 1DF:4 UNIT NOS
  4. VITAMIN D [Concomitant]
  5. DYAZIDE [Concomitant]
     Dosage: 1DF:375/12.5 UNIT NOS
  6. AMBIEN [Concomitant]

REACTIONS (2)
  - Injection site nodule [Unknown]
  - Weight decreased [Unknown]
